FAERS Safety Report 9207063 (Version 4)
Quarter: 2015Q4

REPORT INFORMATION
  Report Type: Report from Study
  Country: MX (occurrence: MX)
  Receive Date: 20130403
  Receipt Date: 20151102
  Transmission Date: 20160305
  Serious: Yes (Death, Other)
  Sender: FDA-Public Use
  Company Number: PHHY2013MX030740

PATIENT
  Sex: Male

DRUGS (5)
  1. STALEVO [Suspect]
     Active Substance: CARBIDOPA\ENTACAPONE\LEVODOPA
     Dosage: 2 (30/200)
     Route: 065
  2. STALEVO [Suspect]
     Active Substance: CARBIDOPA\ENTACAPONE\LEVODOPA
     Dosage: 3 DF (200/200/50 MG), QD
     Route: 065
  3. CAPTOPRIL. [Concomitant]
     Active Substance: CAPTOPRIL
     Indication: BLOOD PRESSURE ABNORMAL
     Dosage: 1 DF, DAILY
     Route: 065
  4. STALEVO [Suspect]
     Active Substance: CARBIDOPA\ENTACAPONE\LEVODOPA
     Indication: PARKINSON^S DISEASE
     Dosage: (200/150/37.5 MG) AT 3 DF, DAILY, STARTED 16 YEARS AGO
     Route: 048
  5. DIAMIN//IMIPRAMINE HYDROCHLORIDE [Concomitant]
     Indication: PARKINSON^S DISEASE
     Dosage: 3 DF, QD
     Route: 065

REACTIONS (5)
  - Pneumonia [Fatal]
  - Eating disorder [Fatal]
  - Movement disorder [Not Recovered/Not Resolved]
  - Parkinson^s disease [Unknown]
  - Dysstasia [Not Recovered/Not Resolved]
